FAERS Safety Report 20002912 (Version 1)
Quarter: 2021Q4

REPORT INFORMATION
  Report Type: Report from Study
  Country: US (occurrence: US)
  Receive Date: 20211027
  Receipt Date: 20211027
  Transmission Date: 20220303
  Serious: Yes (Hospitalization)
  Sender: FDA-Public Use
  Company Number: US-EXELIXIS-XL18421045373

PATIENT

DRUGS (6)
  1. CABOZANTINIB [Suspect]
     Active Substance: CABOZANTINIB
     Indication: Neuroendocrine carcinoma
     Dosage: UNK
     Dates: start: 20210517
  2. CABOZANTINIB [Suspect]
     Active Substance: CABOZANTINIB
     Dosage: 40 MG, QD
     Dates: start: 20210607, end: 20210627
  3. NIVOLUMAB [Suspect]
     Active Substance: NIVOLUMAB
     Indication: Neuroendocrine carcinoma
     Dosage: UNK
     Dates: start: 20210517
  4. NIVOLUMAB [Suspect]
     Active Substance: NIVOLUMAB
     Dosage: 205 MG
     Dates: start: 20210607, end: 20210607
  5. IPILIMUMAB [Suspect]
     Active Substance: IPILIMUMAB
     Indication: Neuroendocrine carcinoma
     Dosage: UNK
     Dates: start: 20210517
  6. IPILIMUMAB [Suspect]
     Active Substance: IPILIMUMAB
     Dosage: 68 MG
     Dates: start: 20210607, end: 20210607

REACTIONS (3)
  - Hyperbilirubinaemia [Not Recovered/Not Resolved]
  - Alanine aminotransferase increased [Not Recovered/Not Resolved]
  - Aspartate aminotransferase increased [Not Recovered/Not Resolved]

NARRATIVE: CASE EVENT DATE: 20210701
